FAERS Safety Report 15761190 (Version 1)
Quarter: 2018Q4

REPORT INFORMATION
  Report Type: Spontaneous
  Country: US (occurrence: US)
  Receive Date: 20181226
  Receipt Date: 20181226
  Transmission Date: 20190205
  Serious: Yes (Hospitalization, Other)
  Sender: FDA-Public Use
  Company Number: US-PFIZER INC-2017319963

PATIENT
  Age: 34 Year
  Sex: Male

DRUGS (5)
  1. GEODON [Suspect]
     Active Substance: ZIPRASIDONE HYDROCHLORIDE\ZIPRASIDONE MESYLATE
     Indication: BIPOLAR DISORDER
     Dosage: 60 MG, 1X/DAY [ONE CAP BY MOUTH AT BEDTIME]
     Route: 048
     Dates: start: 20150306
  2. LANTUS [Concomitant]
     Active Substance: INSULIN GLARGINE
     Dosage: UNK
     Route: 058
  3. CARBAMAZEPINE. [Concomitant]
     Active Substance: CARBAMAZEPINE
     Dosage: 300 MG, 2X/DAY
     Route: 048
     Dates: start: 20170706
  4. GEODON [Suspect]
     Active Substance: ZIPRASIDONE HYDROCHLORIDE\ZIPRASIDONE MESYLATE
     Dosage: 80 MG, 2X/DAY [2 TIMES PER DAY WITH FOOD]
     Route: 048
     Dates: start: 20170706
  5. VISTARIL [HYDROXYZINE EMBONATE] [Concomitant]
     Dosage: 1-2 CAPSULE EVERY 6 HOURS AS NEEDED
     Route: 048
     Dates: start: 20170706

REACTIONS (2)
  - Psychiatric decompensation [Unknown]
  - Treatment noncompliance [Unknown]
